FAERS Safety Report 11249232 (Version 1)
Quarter: 2015Q3

REPORT INFORMATION
  Report Type: Spontaneous
  Country: US (occurrence: US)
  Receive Date: 20150708
  Receipt Date: 20150708
  Transmission Date: 20151125
  Serious: Yes (Hospitalization)
  Sender: FDA-Public Use
  Company Number: US-ELI_LILLY_AND_COMPANY-US200906005599

PATIENT
  Age: 64 Year
  Sex: Male
  Weight: 84 kg

DRUGS (14)
  1. SUNITINIB [Concomitant]
     Active Substance: SUNITINIB
     Dosage: 12.5 MG, 3/D
     Route: 048
     Dates: start: 20080625, end: 20080727
  2. MELOXICAM. [Concomitant]
     Active Substance: MELOXICAM
     Dates: start: 200802
  3. LIPITOR [Concomitant]
     Active Substance: ATORVASTATIN CALCIUM
     Dates: start: 2002
  4. PEGFILGRASTIM [Concomitant]
     Active Substance: PEGFILGRASTIM
     Dates: start: 20081010, end: 20081010
  5. SUNITINIB [Concomitant]
     Active Substance: SUNITINIB
     Dosage: 25 MG, DAILY (1/D)
     Route: 048
     Dates: start: 20080728, end: 20080925
  6. AGGRENOX [Concomitant]
     Active Substance: ASPIRIN\DIPYRIDAMOLE
     Dates: start: 20080613
  7. ALIMTA [Suspect]
     Active Substance: PEMETREXED DISODIUM
  8. PROPRANOLOL [Concomitant]
     Active Substance: PROPRANOLOL\PROPRANOLOL HYDROCHLORIDE
     Dates: start: 2000
  9. SUNITINIB [Concomitant]
     Active Substance: SUNITINIB
     Indication: NON-SMALL CELL LUNG CANCER
     Dosage: 12.5 MG, 3/D
     Route: 048
     Dates: start: 20080403, end: 20080529
  10. FOLIC ACID. [Concomitant]
     Active Substance: FOLIC ACID
     Dates: start: 20080925
  11. DEXAMETHASONE. [Concomitant]
     Active Substance: DEXAMETHASONE
     Dosage: UNK, UNK
     Dates: start: 20081009, end: 20081009
  12. ACETYLSALICYLIC ACID [Concomitant]
     Active Substance: ASPIRIN
     Dates: start: 1994
  13. ALIMTA [Suspect]
     Active Substance: PEMETREXED DISODIUM
     Indication: NON-SMALL CELL LUNG CANCER
     Dosage: 1050 MG, OTHER
     Route: 042
     Dates: start: 20081009, end: 20081009
  14. ARANESP [Concomitant]
     Active Substance: DARBEPOETIN ALFA
     Dates: start: 20081009, end: 20081009

REACTIONS (2)
  - Infection [Recovered/Resolved]
  - Febrile neutropenia [Recovered/Resolved]

NARRATIVE: CASE EVENT DATE: 20081016
